FAERS Safety Report 20844881 (Version 3)
Quarter: 2022Q2

REPORT INFORMATION
  Report Type: Spontaneous
  Country: AU (occurrence: AU)
  Receive Date: 20220518
  Receipt Date: 20220603
  Transmission Date: 20220721
  Serious: Yes (Death, Other)
  Sender: FDA-Public Use
  Company Number: AU-SA-SAC20220516000597

PATIENT
  Sex: Male

DRUGS (3)
  1. LIBTAYO [Suspect]
     Active Substance: CEMIPLIMAB-RWLC
     Indication: Squamous cell carcinoma
     Dosage: 350 MG
     Route: 042
     Dates: start: 20220414, end: 20220510
  2. COLOXYL WITH SENNA [DOCUSATE SODIUM;SENNOSIDE B] [Concomitant]
     Indication: Constipation
     Dosage: 90 MG
     Route: 048
     Dates: start: 20220503, end: 20220510
  3. BUPRENORPHINE [Concomitant]
     Active Substance: BUPRENORPHINE
     Indication: Pain
     Dosage: 15 UG, QW
     Route: 061
     Dates: end: 20220510

REACTIONS (1)
  - Ulcer haemorrhage [Fatal]

NARRATIVE: CASE EVENT DATE: 20220510
